FAERS Safety Report 13194217 (Version 5)
Quarter: 2017Q2

REPORT INFORMATION
  Report Type: Spontaneous
  Country: US (occurrence: US)
  Receive Date: 20170207
  Receipt Date: 20170406
  Transmission Date: 20170830
  Serious: Yes (Hospitalization, Other)
  Sender: FDA-Public Use
  Company Number: US-PFIZER INC-2017049117

PATIENT
  Age: 49 Year
  Sex: Female
  Weight: 92.52 kg

DRUGS (18)
  1. GABAPENTIN. [Concomitant]
     Active Substance: GABAPENTIN
     Indication: SEIZURE
     Dosage: 300 MG, 3X/DAY
     Route: 048
  2. RELPAX [Suspect]
     Active Substance: ELETRIPTAN HYDROBROMIDE
     Indication: MIGRAINE
     Dosage: 20 MG, UNK
     Route: 048
  3. VALIUM [Concomitant]
     Active Substance: DIAZEPAM
     Indication: MUSCLE SPASMS
  4. ALBUTEROL. [Concomitant]
     Active Substance: ALBUTEROL
     Indication: ASTHMA
  5. RELPAX [Suspect]
     Active Substance: ELETRIPTAN HYDROBROMIDE
     Indication: HEADACHE
     Dosage: 40 MG, AS NEEDED (1 AT ONSET OF HA/HEADACHE)
     Route: 048
     Dates: start: 201610
  6. SKELAXIN [Suspect]
     Active Substance: METAXALONE
     Indication: MUSCLE RELAXANT THERAPY
  7. SKELAXIN [Suspect]
     Active Substance: METAXALONE
     Indication: MUSCLE SPASMS
     Dosage: 100 MG, UNK
     Route: 048
  8. TOPAMAX [Concomitant]
     Active Substance: TOPIRAMATE
     Dosage: 50 MG, UNK
     Route: 048
  9. RELPAX [Suspect]
     Active Substance: ELETRIPTAN HYDROBROMIDE
     Dosage: 40 MG, AS NEEDED (1 AT ONSET OF HA/HEADACHE)
     Route: 048
     Dates: end: 201612
  10. VALIUM [Concomitant]
     Active Substance: DIAZEPAM
     Indication: NEURALGIA
     Dosage: 10 MG, 2X/DAY
     Route: 048
  11. ALBUTEROL. [Concomitant]
     Active Substance: ALBUTEROL
     Indication: DYSPNOEA
     Dosage: UNK
  12. HYDROCORTISONE. [Concomitant]
     Active Substance: HYDROCORTISONE
     Indication: ARTHRALGIA
     Dosage: 7.5 MG, 3X/DAY
     Route: 048
  13. SKELAXIN [Suspect]
     Active Substance: METAXALONE
     Indication: LIMB DISCOMFORT
     Dosage: 800 MG, 4X/DAY
     Route: 048
     Dates: end: 201612
  14. VALIUM [Concomitant]
     Active Substance: DIAZEPAM
     Indication: MUSCLE DISORDER
  15. TOPAMAX [Concomitant]
     Active Substance: TOPIRAMATE
     Indication: MIGRAINE
     Dosage: 25 MG, 1X/DAY
     Route: 048
     Dates: start: 201701
  16. SKELAXIN [Suspect]
     Active Substance: METAXALONE
     Indication: BONE PAIN
     Dosage: 800 MG, 3X/DAY
  17. VALIUM [Concomitant]
     Active Substance: DIAZEPAM
     Indication: SEIZURE
  18. VIAGRA [Concomitant]
     Active Substance: SILDENAFIL CITRATE
     Dosage: UNK

REACTIONS (21)
  - Oxygen saturation decreased [Unknown]
  - Hypoaesthesia [Unknown]
  - Vomiting [Recovering/Resolving]
  - Movement disorder [Unknown]
  - Asthma [Unknown]
  - Condition aggravated [Not Recovered/Not Resolved]
  - Muscle spasms [Unknown]
  - Heart rate increased [Unknown]
  - Dizziness [Unknown]
  - Pain [Unknown]
  - Dyspnoea [Unknown]
  - Fall [Unknown]
  - Feeling abnormal [Not Recovered/Not Resolved]
  - Nausea [Recovering/Resolving]
  - Abdominal discomfort [Unknown]
  - Wound [Recovered/Resolved]
  - Migraine [Not Recovered/Not Resolved]
  - Pain in extremity [Unknown]
  - Back pain [Unknown]
  - Withdrawal syndrome [Unknown]
  - Scar [Unknown]

NARRATIVE: CASE EVENT DATE: 20170304
